FAERS Safety Report 11240030 (Version 4)
Quarter: 2015Q3

REPORT INFORMATION
  Report Type: Spontaneous
  Country: US (occurrence: US)
  Receive Date: 20150706
  Receipt Date: 20150731
  Transmission Date: 20151125
  Serious: Yes (Hospitalization, Disabling, Other)
  Sender: FDA-Public Use
  Company Number: US-PFIZER INC-2015220418

PATIENT
  Age: 69 Year
  Sex: Male
  Weight: 88 kg

DRUGS (5)
  1. RAPAMUNE [Suspect]
     Active Substance: SIROLIMUS
     Indication: PROPHYLAXIS AGAINST TRANSPLANT REJECTION
     Dosage: 1 MG, DAILY
     Dates: start: 2006
  2. NOVOLOG [Concomitant]
     Active Substance: INSULIN ASPART
     Dosage: UNK
  3. LANTUS [Concomitant]
     Active Substance: INSULIN GLARGINE
     Dosage: UNK
  4. RAPAMUNE [Suspect]
     Active Substance: SIROLIMUS
     Dosage: 1 MG A DAY AND 0.5 MG THE DAY AFTER
     Dates: start: 2014
  5. CELLCEPT [Suspect]
     Active Substance: MYCOPHENOLATE MOFETIL\MYCOPHENOLATE MOFETIL HYDROCHLORIDE
     Indication: PROPHYLAXIS AGAINST TRANSPLANT REJECTION
     Dosage: 1500 MG, 2X/DAY
     Dates: start: 2006

REACTIONS (7)
  - Staphylococcal infection [Unknown]
  - Hernia [Unknown]
  - Vocal cord paralysis [Unknown]
  - Bacterial infection [Unknown]
  - Dysphagia [Unknown]
  - Pneumonia [Unknown]
  - Pharyngitis [Recovering/Resolving]

NARRATIVE: CASE EVENT DATE: 20150409
